FAERS Safety Report 25352021 (Version 2)
Quarter: 2025Q2

REPORT INFORMATION
  Report Type: Spontaneous
  Country: JP (occurrence: JP)
  Receive Date: 20250523
  Receipt Date: 20250618
  Transmission Date: 20250716
  Serious: No
  Sender: PFIZER
  Company Number: JP-PFIZER INC-PV202500060552

PATIENT
  Age: 13 Year
  Sex: Male
  Weight: 52 kg

DRUGS (2)
  1. NGENLA [Suspect]
     Active Substance: SOMATROGON-GHLA
     Indication: Blood growth hormone decreased
     Dosage: 30 MG, WEEKLY
     Route: 058
     Dates: start: 20240510
  2. NGENLA [Suspect]
     Active Substance: SOMATROGON-GHLA
     Indication: Growth hormone deficiency

REACTIONS (1)
  - Injection site pain [Recovering/Resolving]

NARRATIVE: CASE EVENT DATE: 20240510
